FAERS Safety Report 21537188 (Version 1)
Quarter: 2022Q4

REPORT INFORMATION
  Report Type: Spontaneous
  Country: US (occurrence: None)
  Receive Date: 20221031
  Receipt Date: 20221031
  Transmission Date: 20230113
  Serious: Yes (Hospitalization)
  Sender: FDA-Public Use
  Company Number: None

PATIENT
  Age: 65 Year
  Sex: Male

DRUGS (2)
  1. PROMACTA [Suspect]
     Active Substance: ELTROMBOPAG OLAMINE
  2. PAXLOVID [Concomitant]

REACTIONS (2)
  - COVID-19 [None]
  - Labelled drug-drug interaction issue [None]

NARRATIVE: CASE EVENT DATE: 20221028
